FAERS Safety Report 9642825 (Version 2)
Quarter: 2014Q3

REPORT INFORMATION
  Report Type: Spontaneous
  Country: JP (occurrence: JP)
  Receive Date: 20131024
  Receipt Date: 20140909
  Transmission Date: 20150326
  Serious: Yes (Hospitalization)
  Sender: FDA-Public Use
  Company Number: JP-TAKEDA-2013TEU001530

PATIENT
  Age: 55 Year
  Sex: Male

DRUGS (5)
  1. TACHOSIL [Suspect]
     Active Substance: FIBRINOGEN HUMAN\THROMBIN HUMAN
     Indication: PROPHYLAXIS
     Dosage: 1SHEET OF REGULAR SIZE
     Route: 065
     Dates: start: 20130319, end: 20130319
  2. LETRAC [Concomitant]
     Indication: HEPATIC CANCER METASTATIC
     Dosage: 60 MG, TID
     Route: 048
     Dates: start: 20130321
  3. CEFAPICOL [Concomitant]
     Active Substance: UNSPECIFIED INGREDIENT
     Indication: PROPHYLAXIS
     Dosage: 1 G, BID
     Route: 042
     Dates: start: 20130319, end: 20130320
  4. MUCOSTA [Concomitant]
     Active Substance: REBAMIPIDE
     Indication: HEPATIC CANCER METASTATIC
     Dosage: 100 MG, TID
     Route: 048
     Dates: start: 20130321
  5. PARIET [Concomitant]
     Active Substance: RABEPRAZOLE SODIUM
     Indication: HEPATIC CANCER METASTATIC
     Dosage: 10 MG, QD
     Route: 048
     Dates: start: 20130322

REACTIONS (3)
  - Procedural haemorrhage [None]
  - Abdominal abscess [Recovering/Resolving]
  - Red blood cell count decreased [None]

NARRATIVE: CASE EVENT DATE: 20130323
